FAERS Safety Report 6784727-2 (Version None)
Quarter: 2010Q2

REPORT INFORMATION
  Report Type: 
  Country: None (occurrence: None)
  Receive Date: 20100622
  Receipt Date: 20100611
  Transmission Date: 20101027
  Serious: Yes (Other)
  Sender: FDA-Public Use
  Company Number: CA-JNJFOC-20100510717

PATIENT
  Age: 2 Year
  Sex: Male
  Weight: 13.61 kg

DRUGS (2)
  1. CHILDREN'S TYLENOL SUSPENSION [Suspect]
     Indication: GASTROENTERITIS VIRAL
     Route: 048
  2. CHILDREN'S TYLENOL SUSPENSION [Suspect]
     Indication: PYREXIA
     Route: 048

REACTIONS (2)
  - CONVULSION [None]
  - PRODUCT QUALITY ISSUE [None]
